FAERS Safety Report 4457799-8 (Version None)
Quarter: 2004Q3

REPORT INFORMATION
  Report Type: 
  Country: None (occurrence: None)
  Receive Date: 20040917
  Receipt Date: 20040202
  Transmission Date: 20050211
  Serious: Yes (Other)
  Sender: FDA-Public Use
  Company Number: NSADSS2002025158

PATIENT
  Age: 53 Year
  Sex: Female
  Weight: 67.586 kg

DRUGS (14)
  1. TOPAMAX [Suspect]
     Indication: MIGRAINE
     Dosage: ORAL; 50 MG, 1 IN 1 DAY, ORAL; 50 MG, 2 IN 1 DAY, ORAL
     Route: 048
     Dates: start: 20020701, end: 20020729
  2. TOPAMAX [Suspect]
     Indication: MIGRAINE
     Dosage: ORAL; 50 MG, 1 IN 1 DAY, ORAL; 50 MG, 2 IN 1 DAY, ORAL
     Route: 048
     Dates: start: 20020730, end: 20020929
  3. TOPAMAX [Suspect]
     Indication: MIGRAINE
     Dosage: ORAL; 50 MG, 1 IN 1 DAY, ORAL; 50 MG, 2 IN 1 DAY, ORAL
     Route: 048
     Dates: start: 20030930
  4. COUMADIN [Concomitant]
  5. MULTIVITAMIN (MULTIVITAMIN) UNSPECIFIED [Concomitant]
  6. NASONEX (MOMETASONE FUROATE) UNSPECIFIED [Concomitant]
  7. MAGNESIUM CARBONATE (MAGNESIUM CARBONATE) UNSPECIFIED [Concomitant]
  8. CALCIUM ACETATE (CALCIUM ACETATE) UNSPECIFIED [Concomitant]
  9. FLONASE (FLUTICASONE PROPIONATE) UNSPECIFIED [Concomitant]
  10. ALBUTEROL (SALBUTAMOL) UNSPECIFIED [Concomitant]
  11. ASPIRIN [Concomitant]
  12. ADVAIR DISKUS (SERETIDE MITE) UNSPECIFIED [Concomitant]
  13. NEURONTIN (GABAPENTIN) UNSPECIFIED [Concomitant]
  14. PROGESTERONE [Concomitant]

REACTIONS (8)
  - APHASIA [None]
  - CONFUSIONAL STATE [None]
  - DECREASED APPETITE [None]
  - DEPRESSED MOOD [None]
  - NAUSEA [None]
  - PHOTOPHOBIA [None]
  - PULMONARY EMBOLISM [None]
  - WEIGHT DECREASED [None]
